FAERS Safety Report 24135161 (Version 2)
Quarter: 2024Q3

REPORT INFORMATION
  Report Type: Spontaneous
  Country: US (occurrence: US)
  Receive Date: 20240725
  Receipt Date: 20240913
  Transmission Date: 20241017
  Serious: Yes (Other)
  Sender: ALK-ABELLO
  Company Number: US-ALK-ABELLO A/S-2024AA002929

PATIENT

DRUGS (10)
  1. 10 TREE MIX [Suspect]
     Active Substance: ACER NEGUNDO POLLEN\BETULA NIGRA POLLEN\BLACK WALNUT\CARYA OVATA POLLEN\FRAXINUS AMERICANA POLLEN\PL
     Indication: Conjunctivitis allergic
     Dosage: 1:20 W/V 2.0 ML
     Route: 058
     Dates: start: 20230817, end: 20240616
  2. AGROSTIS GIGANTEA POLLEN\DACTYLIS GLOMERATA\FESTUCA PRATENSIS\LOLIUM P [Suspect]
     Active Substance: AGROSTIS GIGANTEA POLLEN\DACTYLIS GLOMERATA\FESTUCA PRATENSIS\LOLIUM PERENNE\PHLEUM PRATENSE\POA PRA
     Indication: Conjunctivitis allergic
     Dosage: 100.000 BAU, 0.40 ML
     Route: 058
     Dates: start: 20230817, end: 20240716
  3. CANIS LUPUS FAMILIARIS SKIN [Suspect]
     Active Substance: CANIS LUPUS FAMILIARIS SKIN
     Indication: Conjunctivitis allergic
     Dosage: 1:20 W/V 1.0 ML
     Route: 058
     Dates: start: 20230817, end: 20240716
  4. FELIS CATUS HAIR [Suspect]
     Active Substance: FELIS CATUS HAIR
     Indication: Conjunctivitis allergic
     Dosage: 100.000 BAU, 3.0 ML
     Route: 058
     Dates: start: 20230817, end: 20240716
  5. DERMATOPHAGOIDES FARINAE\DERMATOPHAGOIDES PTERONYSSINUS [Suspect]
     Active Substance: DERMATOPHAGOIDES FARINAE\DERMATOPHAGOIDES PTERONYSSINUS
     Indication: Conjunctivitis allergic
     Dosage: 100.000 AU 4.0 ML
     Route: 058
     Dates: start: 20230817, end: 20240716
  6. STERILE DILUENT FOR ALLERGENIC EXTRACT NOS [Suspect]
     Active Substance: ALBUMIN HUMAN OR GLYCERIN OR PHENOL
     Indication: Conjunctivitis allergic
     Dosage: 3,6 ML
     Route: 058
     Dates: start: 20230817, end: 20240716
  7. STERILE DILUENT FOR ALLERGENIC EXTRACT NOS [Suspect]
     Active Substance: ALBUMIN HUMAN OR GLYCERIN OR PHENOL
     Dosage: 6 ML
     Route: 058
     Dates: start: 20230817, end: 20240716
  8. Asthalin [Concomitant]
     Indication: Rhinitis allergic
  9. CETIRIZINE [Concomitant]
     Active Substance: CETIRIZINE HYDROCHLORIDE
     Indication: Rhinitis allergic
  10. ALBUTEROL [Concomitant]
     Active Substance: ALBUTEROL
     Indication: Rhinitis allergic

REACTIONS (1)
  - Anaphylactic reaction [Recovered/Resolved]

NARRATIVE: CASE EVENT DATE: 20240716
